FAERS Safety Report 15289390 (Version 9)
Quarter: 2019Q4

REPORT INFORMATION
  Report Type: Report from Study
  Country: DE (occurrence: DE)
  Receive Date: 20180817
  Receipt Date: 20191115
  Transmission Date: 20200122
  Serious: Yes (Hospitalization, Other)
  Sender: FDA-Public Use
  Company Number: PHHY2018DE071900

PATIENT
  Sex: Female
  Weight: 80 kg

DRUGS (11)
  1. RAMIPRIL. [Concomitant]
     Active Substance: RAMIPRIL
     Indication: CARDIAC FAILURE
     Dosage: 5 MG, BID (1-0-1)
     Route: 048
     Dates: start: 20170221
  2. DEKRISTOL [Concomitant]
     Active Substance: CHOLECALCIFEROL
     Indication: OSTEOPOROSIS PROPHYLAXIS
     Dosage: 20000 IU, QW
     Route: 048
     Dates: start: 20160809
  3. COSENTYX [Suspect]
     Active Substance: SECUKINUMAB
     Dosage: 150 MG, QW
     Route: 065
     Dates: start: 20180329
  4. MORPHINE [Concomitant]
     Active Substance: MORPHINE
     Indication: INTERVERTEBRAL DISC PROTRUSION
     Dosage: 10  MG, QD
     Route: 048
     Dates: start: 20180220
  5. COSENTYX [Suspect]
     Active Substance: SECUKINUMAB
     Dosage: 150 MG, QW
     Route: 065
     Dates: start: 20180405
  6. COSENTYX [Suspect]
     Active Substance: SECUKINUMAB
     Dosage: 150 MG, QW
     Route: 065
     Dates: start: 20180419
  7. COSENTYX [Suspect]
     Active Substance: SECUKINUMAB
     Dosage: 150 MG, QW
     Route: 065
     Dates: start: 20180522, end: 20180523
  8. CELEBREX [Concomitant]
     Active Substance: CELECOXIB
     Indication: ANKYLOSING SPONDYLITIS
     Dosage: 200 MG, QMO (AS NEEDED)
     Route: 048
     Dates: start: 20141020
  9. BISOPROLOL [Concomitant]
     Active Substance: BISOPROLOL
     Indication: CARDIAC FAILURE
     Dosage: 5 MG, QD (1-0-0)
     Route: 048
     Dates: start: 20140402
  10. COSENTYX [Suspect]
     Active Substance: SECUKINUMAB
     Indication: ANKYLOSING SPONDYLITIS
     Dosage: 150 MG, QW
     Route: 065
     Dates: start: 20180320
  11. COSENTYX [Suspect]
     Active Substance: SECUKINUMAB
     Dosage: 150 MG, QW
     Route: 065
     Dates: start: 20180412

REACTIONS (9)
  - Clostridium difficile infection [Recovering/Resolving]
  - Diarrhoea [Unknown]
  - Defaecation disorder [Unknown]
  - Glomerular filtration rate decreased [Unknown]
  - Terminal insomnia [Unknown]
  - Acute kidney injury [Recovered/Resolved]
  - Enteritis [Recovering/Resolving]
  - Hypothyroidism [Unknown]
  - Headache [Unknown]

NARRATIVE: CASE EVENT DATE: 20180612
